FAERS Safety Report 8178656-X (Version None)
Quarter: 2012Q1

REPORT INFORMATION
  Report Type: 
  Country: None (occurrence: None)
  Receive Date: 20120301
  Receipt Date: 20120221
  Transmission Date: 20120608
  Serious: Yes (Other)
  Sender: FDA-Public Use
  Company Number: US-ASTRAZENECA-2011SE05272

PATIENT
  Age: 54 Year
  Sex: Male

DRUGS (2)
  1. CRESTOR [Suspect]
     Route: 048
  2. NEXIUM [Suspect]
     Indication: GASTROOESOPHAGEAL REFLUX DISEASE
     Route: 048

REACTIONS (9)
  - DYSPNOEA [None]
  - PRECANCEROUS CELLS PRESENT [None]
  - GASTRIC DISORDER [None]
  - DIARRHOEA [None]
  - POLYP [None]
  - BACK DISORDER [None]
  - PHARYNGEAL DISORDER [None]
  - DYSSTASIA [None]
  - POSTURE ABNORMAL [None]
